FAERS Safety Report 19866669 (Version 1)
Quarter: 2021Q3

REPORT INFORMATION
  Report Type: Spontaneous
  Country: US (occurrence: US)
  Receive Date: 20210921
  Receipt Date: 20210921
  Transmission Date: 20211014
  Serious: No
  Sender: FDA-Public Use
  Company Number: US-BRAINTREE LABORATORIES, INC.-2020BTE04228

PATIENT
  Age: 72 Year
  Sex: Female
  Weight: 72.57 kg

DRUGS (1)
  1. SUPREP BOWEL PREP [Suspect]
     Active Substance: MAGNESIUM SULFATE\POTASSIUM SULFATE\SODIUM SULFATE
     Indication: COLONOSCOPY
     Dosage: 1 X 6 OZ. BOTTLE
     Route: 048
     Dates: start: 20200915, end: 20200915

REACTIONS (5)
  - Abdominal pain upper [None]
  - Bladder irritation [None]
  - Nausea [None]
  - Abdominal tenderness [None]
  - Retching [None]

NARRATIVE: CASE EVENT DATE: 20200915
